FAERS Safety Report 9205796 (Version 1)
Quarter: 2013Q2

REPORT INFORMATION
  Report Type: Spontaneous
  Country: DE (occurrence: None)
  Receive Date: 20130401
  Receipt Date: 20130401
  Transmission Date: 20140414
  Serious: Yes (Hospitalization)
  Sender: FDA-Public Use
  Company Number: AG-2012-2126

PATIENT
  Age: 72 Year
  Sex: Male
  Weight: 70 kg

DRUGS (7)
  1. CHLORAMBUCIL [Suspect]
     Indication: CHRONIC LYMPHOCYTIC LEUKAEMIA
     Dosage: UNKNOWN (35 MILLIGRAM, DAY 1, DAY 15/ EVERY 28 DAYS), ORAL
     Route: 048
     Dates: start: 20120611
  2. OBINUTUZUMAB [Suspect]
     Indication: CHRONIC LYMPHOCYTIC LEUKAEMIA
     Dosage: 1000 MILLIGRAM (UNKNOWN, UNKNOWN), INTRAVENOUS (NOT OTHERWISE SPECIFIED)
     Route: 042
     Dates: start: 20120611
  3. MARCUMAR (PHENPROCOUMON) [Concomitant]
  4. GLIMEPRID (GLIMEPIRIDE) [Concomitant]
  5. TRAZODONE (TRAZODONE) [Concomitant]
  6. CLINDAMYCIN (CLINDAMYCIN) [Concomitant]
  7. MICARDIS (TELMISARTAN) [Concomitant]

REACTIONS (1)
  - Erysipelas [None]
